FAERS Safety Report 17861606 (Version 1)
Quarter: 2020Q2

REPORT INFORMATION
  Report Type: Spontaneous
  Country: FR (occurrence: FR)
  Receive Date: 20200604
  Receipt Date: 20200604
  Transmission Date: 20200714
  Serious: Yes (Other)
  Sender: FDA-Public Use
  Company Number: FR-009507513-2005FRA009666

PATIENT
  Age: 59 Year
  Sex: Male

DRUGS (4)
  1. AVASTIN (SIMVASTATIN) [Suspect]
     Active Substance: SIMVASTATIN
  2. TEMODAL [Suspect]
     Active Substance: TEMOZOLOMIDE
     Dosage: 400 MG FOR 5 DAYS
     Route: 048
     Dates: start: 20200516
  3. TEMODAL [Suspect]
     Active Substance: TEMOZOLOMIDE
     Indication: GLIOBLASTOMA
     Dosage: 145 MG/DAY FOR 6 WEEKS
     Route: 048
     Dates: start: 20200129, end: 20200219
  4. TEMODAL [Suspect]
     Active Substance: TEMOZOLOMIDE
     Dosage: 300 MG FOR 5 DAYS
     Route: 048
     Dates: start: 20200417

REACTIONS (7)
  - Rash [Unknown]
  - Hepatitis cholestatic [Unknown]
  - Rash papular [Unknown]
  - Hyperthermia [Unknown]
  - Eosinophilia [Unknown]
  - Lymphopenia [Unknown]
  - Hepatocellular injury [Unknown]

NARRATIVE: CASE EVENT DATE: 2020
